FAERS Safety Report 13256649 (Version 1)
Quarter: 2017Q1

REPORT INFORMATION
  Report Type: Spontaneous
  Country: BR (occurrence: BR)
  Receive Date: 20170221
  Receipt Date: 20170221
  Transmission Date: 20170428
  Serious: Yes (Other)
  Sender: FDA-Public Use
  Company Number: BR-PFIZER INC-2017069651

PATIENT
  Sex: Male

DRUGS (1)
  1. FELDENE [Suspect]
     Active Substance: PIROXICAM
     Dosage: 20 MG, UNK

REACTIONS (3)
  - Blister [Unknown]
  - Skin burning sensation [Unknown]
  - Hypersensitivity [Not Recovered/Not Resolved]
